FAERS Safety Report 5154730-7 (Version None)
Quarter: 2006Q4

REPORT INFORMATION
  Report Type: 
  Country: None (occurrence: None)
  Receive Date: 20061115
  Receipt Date: 20061115
  Transmission Date: 20070319
  Serious: Yes (Hospitalization)
  Sender: FDA-Public Use
  Company Number: None

PATIENT
  Sex: Female
  Weight: 45 kg

DRUGS (3)
  1. CISPLATIN [Suspect]
     Dosage: 79.5 MG
  2. TOPOTECAN [Suspect]
     Dosage: 3.57 MG
  3. OXYCONTIN [Concomitant]

REACTIONS (5)
  - ANAEMIA [None]
  - BLOOD PRESSURE SYSTOLIC DECREASED [None]
  - DEHYDRATION [None]
  - HEART RATE INCREASED [None]
  - RESPIRATORY DISTRESS [None]
